FAERS Safety Report 6596530-7 (Version None)
Quarter: 2010Q1

REPORT INFORMATION
  Report Type: 
  Country: None (occurrence: None)
  Receive Date: 20100222
  Receipt Date: 20100222
  Transmission Date: 20100710
  Serious: No
  Sender: FDA-Public Use
  Company Number: None

PATIENT
  Age: 78 Year
  Sex: Male

DRUGS (1)
  1. FEBUXOSTAT [Suspect]
     Indication: GOUT
     Dosage: 40 MG EVERY DAY PO
     Route: 048
     Dates: start: 20100128, end: 20100208

REACTIONS (3)
  - PRURITUS [None]
  - RASH [None]
  - URTICARIA [None]
